FAERS Safety Report 7979294-1 (Version None)
Quarter: 2011Q4

REPORT INFORMATION
  Report Type: 
  Country: None (occurrence: None)
  Receive Date: 20111214
  Receipt Date: 20111209
  Transmission Date: 20120403
  Serious: Yes (Life-Threatening)
  Sender: FDA-Public Use
  Company Number: GB-BAYER-2011-118677

PATIENT
  Age: 24 Year
  Sex: Female
  Weight: 79 kg

DRUGS (2)
  1. VOLTAREN [Suspect]
     Indication: POSTOPERATIVE CARE
     Dosage: 100 MG, UNK
     Route: 054
     Dates: start: 20111109, end: 20111109
  2. CODEINE PHOSPHATE AND ACETAMINOPHEN [Suspect]
     Dosage: UNK
     Route: 048
     Dates: start: 20111109, end: 20111109

REACTIONS (4)
  - BLOOD PRESSURE DECREASED [None]
  - SWELLING FACE [None]
  - TACHYCARDIA [None]
  - ANAPHYLACTIC REACTION [None]
